FAERS Safety Report 9064366 (Version 1)
Quarter: 2013Q1

REPORT INFORMATION
  Report Type: Spontaneous
  Country: SE (occurrence: SE)
  Receive Date: 20130213
  Receipt Date: 20130213
  Transmission Date: 20140127
  Serious: Yes (Other)
  Sender: FDA-Public Use
  Company Number: SE-ABBOTT-13P-150-1041418-00

PATIENT
  Sex: Male

DRUGS (2)
  1. ENANTONE [Suspect]
     Indication: PROSTATE CANCER
     Route: 058
     Dates: start: 201205
  2. ENANTONE [Suspect]
     Route: 058
     Dates: start: 20121109, end: 20121109

REACTIONS (1)
  - Injection site cellulitis [Not Recovered/Not Resolved]
